FAERS Safety Report 6161774-5 (Version None)
Quarter: 2009Q2

REPORT INFORMATION
  Report Type: 
  Country: None (occurrence: None)
  Receive Date: 20090417
  Receipt Date: 20090417
  Transmission Date: 20091009
  Serious: Yes (Death)
  Sender: FDA-Public Use
  Company Number: None

PATIENT
  Age: 48 Year
  Sex: Male
  Weight: 133.1 kg

DRUGS (2)
  1. LEVAQUIN [Suspect]
     Indication: LEUKOCYTOSIS
     Dosage: 500MG  DAILY IV BOLUS
     Route: 040
     Dates: start: 20090405, end: 20090411
  2. AVELOX [Suspect]
     Indication: PNEUMONIA
     Dosage: 400 MG DAILY PO
     Route: 048
     Dates: start: 20090407, end: 20090408

REACTIONS (4)
  - ACUTE HEPATIC FAILURE [None]
  - ASTHENIA [None]
  - GENERAL PHYSICAL HEALTH DETERIORATION [None]
  - NAUSEA [None]
